FAERS Safety Report 20263997 (Version 5)
Quarter: 2022Q1

REPORT INFORMATION
  Report Type: Spontaneous
  Country: GB (occurrence: GB)
  Receive Date: 20211231
  Receipt Date: 20220215
  Transmission Date: 20220423
  Serious: Yes (Other)
  Sender: FDA-Public Use
  Company Number: None

PATIENT
  Age: 51 Year
  Sex: Male
  Weight: 53 kg

DRUGS (45)
  1. CISPLATIN [Suspect]
     Active Substance: CISPLATIN
     Indication: Germ cell neoplasm
     Dosage: IN 1 LITER (NOT SPECIFIED) (79 MG)
     Route: 065
     Dates: start: 20200825
  2. ETOPOSIDE [Suspect]
     Active Substance: ETOPOSIDE
     Indication: Germ cell neoplasm
     Dosage: IN 1 LITER 2 BAGS (360 MG)
     Route: 065
     Dates: start: 20200825, end: 20200825
  3. APREPITANT [Suspect]
     Active Substance: APREPITANT
     Indication: Supportive care
     Dosage: D1 (125 MG)
     Route: 065
     Dates: start: 20200825
  4. THIAMINE [Suspect]
     Active Substance: THIAMINE
     Indication: Hypovitaminosis
     Dosage: 300 MG, QD
     Route: 065
  5. ONDANSETRON [Suspect]
     Active Substance: ONDANSETRON
     Indication: Supportive care
     Dosage: FOR 3 DAYS (16 MG,1 D)
     Route: 048
     Dates: start: 20200825
  6. CHOLECALCIFEROL [Suspect]
     Active Substance: CHOLECALCIFEROL
     Indication: Mineral supplementation
     Dosage: TABLET(1D) / UNK, QD (TABLET(1D)
     Route: 048
  7. DOMPERIDONE [Suspect]
     Active Substance: DOMPERIDONE
     Indication: Supportive care
     Dosage: PRN (30 MG,1 D)
     Route: 048
     Dates: start: 20200825
  8. DEXAMETHASONE [Suspect]
     Active Substance: DEXAMETHASONE
     Indication: Supportive care
     Dosage: 8 MG, QD
     Route: 048
     Dates: start: 20200825
  9. CALCIUM CARBONATE\CHOLECALCIFEROL [Suspect]
     Active Substance: CALCIUM CARBONATE\CHOLECALCIFEROL
     Indication: Mineral supplementation
     Dosage: 2 DF, QD (TABLET 2 UNK)
     Route: 065
  10. SODIUM CHLORIDE [Suspect]
     Active Substance: SODIUM CHLORIDE
     Indication: Medication dilution
     Dosage: 0.9 %
     Route: 042
     Dates: start: 20200825, end: 20200825
  11. NICOTINE [Suspect]
     Active Substance: NICOTINE
     Indication: Drug therapy
     Dosage: 21 MG, QD, PATCH, EVERY 24 HOURS
     Route: 065
  12. PHENYLBUTAZONE [Suspect]
     Active Substance: PHENYLBUTAZONE
     Indication: Hypovitaminosis
     Dosage: 300 MILLIGRAM, QD
     Route: 065
  13. CALCIUM\VITAMIN D [Suspect]
     Active Substance: CALCIUM\VITAMIN D
     Indication: Mineral supplementation
     Dosage: UNK UNK, QD
     Route: 065
  14. PROPYPHENAZONE [Suspect]
     Active Substance: PROPYPHENAZONE
     Indication: Hypovitaminosis
     Dosage: 300 MILLIGRAM, QD
  15. NAUZELIN [Suspect]
     Active Substance: DOMPERIDONE
     Indication: Supportive care
     Dosage: 30 MG, QD (AS NECESSARY)
     Route: 048
     Dates: start: 20200825
  16. CALCIUM CARBONATE [Suspect]
     Active Substance: CALCIUM CARBONATE
     Indication: Mineral supplementation
     Dosage: 8 DF, QD.
  17. CALCIUM [Suspect]
     Active Substance: CALCIUM
     Indication: Mineral supplementation
     Dosage: 8 DF, QD
     Route: 065
  18. CALCIUM PHOSPHATE [Suspect]
     Active Substance: CALCIUM PHOSPHATE
     Indication: Mineral supplementation
  19. ERGOCALCIFEROL [Suspect]
     Active Substance: ERGOCALCIFEROL
     Indication: Product used for unknown indication
  20. ASCORBIC ACID [Suspect]
     Active Substance: ASCORBIC ACID
     Indication: Product used for unknown indication
     Dosage: 1 DF, QD
  21. CALCIUM PANTOTHENATE [Suspect]
     Active Substance: CALCIUM PANTOTHENATE
     Indication: Product used for unknown indication
  22. POTASSIUM CITRATE [Suspect]
     Active Substance: POTASSIUM CITRATE
     Indication: Product used for unknown indication
  23. BIOTIN [Suspect]
     Active Substance: BIOTIN
     Indication: Product used for unknown indication
  24. FERROUS SULFATE [Suspect]
     Active Substance: FERROUS SULFATE
     Indication: Product used for unknown indication
  25. POTASSIUM IODIDE [Suspect]
     Active Substance: POTASSIUM IODIDE
     Indication: Product used for unknown indication
     Dosage: 1 DF, QD
  26. FOLIC ACID [Suspect]
     Active Substance: FOLIC ACID
     Indication: Product used for unknown indication
     Dosage: 1 DF
  27. MAGNESIUM CHLORIDE [Suspect]
     Active Substance: MAGNESIUM CHLORIDE
     Indication: Product used for unknown indication
  28. PHYTONADIONE [Suspect]
     Active Substance: PHYTONADIONE
     Indication: Product used for unknown indication
  29. RIBOFLAVIN [Suspect]
     Active Substance: RIBOFLAVIN
     Indication: Product used for unknown indication
     Dosage: 1 DF, QD
  30. MANGANESE CHLORIDE [Suspect]
     Active Substance: MANGANESE CHLORIDE
     Indication: Product used for unknown indication
  31. VITAMIN A PALMITATE [Suspect]
     Active Substance: VITAMIN A PALMITATE
     Indication: Product used for unknown indication
     Dosage: 1 DF, QD
  32. NICOTINAMIDE [Suspect]
     Active Substance: NIACINAMIDE
     Indication: Product used for unknown indication
     Dosage: 1 DF, QD
  33. .ALPHA.-TOCOPHEROL ACETATE [Suspect]
     Active Substance: .ALPHA.-TOCOPHEROL ACETATE
     Indication: Product used for unknown indication
  34. POTASSIUM CHLORIDE [Suspect]
     Active Substance: POTASSIUM CHLORIDE
     Indication: Product used for unknown indication
     Dosage: 1 DF, QD
  35. LINOLEIC ACID [Suspect]
     Active Substance: LINOLEIC ACID
     Indication: Product used for unknown indication
  36. PYRIDOXINE HYDROCHLORIDE [Suspect]
     Active Substance: PYRIDOXINE HYDROCHLORIDE
     Indication: Product used for unknown indication
     Dosage: 1 DF, QD
  37. CUPRIC SULFATE ANHYDROUS [Suspect]
     Active Substance: CUPRIC SULFATE ANHYDROUS
     Indication: Product used for unknown indication
  38. CYANOCOBALAMIN [Suspect]
     Active Substance: CYANOCOBALAMIN
     Indication: Product used for unknown indication
     Dosage: 1 DF, QD
  39. ZINC SULFATE [Suspect]
     Active Substance: ZINC SULFATE
     Indication: Product used for unknown indication
  40. CALCIUM\CHOLECALCIFEROL [Suspect]
     Active Substance: CALCIUM\CHOLECALCIFEROL
     Indication: Product used for unknown indication
     Dosage: 1 DF, QD
     Route: 065
  41. ETORICOXIB [Suspect]
     Active Substance: ETORICOXIB
     Indication: Product used for unknown indication
  42. COCODAMOL [Suspect]
     Active Substance: ACETAMINOPHEN\CODEINE PHOSPHATE
     Indication: Product used for unknown indication
  43. CALCIUM CARBONATE\CHOLECALCIFEROL [Suspect]
     Active Substance: CALCIUM CARBONATE\CHOLECALCIFEROL
     Indication: Mineral supplementation
  44. CALCIUM CARBONATE\CHOLECALCIFEROL [Suspect]
     Active Substance: CALCIUM CARBONATE\CHOLECALCIFEROL
     Indication: Product used for unknown indication
     Dosage: 2 DF
     Route: 065
  45. CALCIUM CARBONATE\CHOLECALCIFEROL [Suspect]
     Active Substance: CALCIUM CARBONATE\CHOLECALCIFEROL
     Indication: Product used for unknown indication
     Dosage: 2 DF

REACTIONS (9)
  - Abdominal distension [Unknown]
  - Barrett^s oesophagus [Unknown]
  - Vitamin B12 deficiency [Unknown]
  - Regurgitation [Unknown]
  - Dyspepsia [Unknown]
  - Neck pain [Unknown]
  - Oropharyngeal discomfort [Unknown]
  - Eructation [Unknown]
  - Hypersensitivity [Recovered/Resolved]

NARRATIVE: CASE EVENT DATE: 20200825
